FAERS Safety Report 6577205-7 (Version None)
Quarter: 2010Q1

REPORT INFORMATION
  Report Type: 
  Country: None (occurrence: None)
  Receive Date: 20100210
  Receipt Date: 20100202
  Transmission Date: 20100710
  Serious: Yes (Other)
  Sender: FDA-Public Use
  Company Number: PHHY2010IE06026

PATIENT
  Sex: Male

DRUGS (3)
  1. RASILEZ [Suspect]
     Indication: HYPERTENSION
     Route: 065
  2. RASILEZ HCT [Suspect]
     Route: 065
  3. ANTIHYPERTENSIVES [Concomitant]
     Route: 065

REACTIONS (3)
  - BLOOD PRESSURE INADEQUATELY CONTROLLED [None]
  - MALAISE [None]
  - RENAL IMPAIRMENT [None]
